FAERS Safety Report 7640927-0 (Version None)
Quarter: 2011Q3

REPORT INFORMATION
  Report Type: 
  Country: None (occurrence: None)
  Receive Date: 20110728
  Receipt Date: 20110719
  Transmission Date: 20111222
  Serious: Yes (Other)
  Sender: FDA-Public Use
  Company Number: NL-JNJFOC-20110505607

PATIENT
  Sex: Female
  Weight: 71 kg

DRUGS (2)
  1. CONCERTA [Suspect]
     Indication: ATTENTION DEFICIT/HYPERACTIVITY DISORDER
     Route: 048
     Dates: start: 20051001
  2. FLUVOXAMIN [Concomitant]
     Route: 065

REACTIONS (5)
  - INTRAOCULAR PRESSURE INCREASED [None]
  - MALAISE [None]
  - VISUAL IMPAIRMENT [None]
  - RENAL IMPAIRMENT [None]
  - DYSPNOEA [None]
